FAERS Safety Report 4709644-0 (Version None)
Quarter: 2005Q2

REPORT INFORMATION
  Report Type: 
  Country: None (occurrence: None)
  Receive Date: 20050629
  Receipt Date: 20050315
  Transmission Date: 20051028
  Serious: No
  Sender: FDA-Public Use
  Company Number: 05P-163-0294042-00

PATIENT
  Age: 54 Year
  Sex: Female
  Weight: 47.6277 kg

DRUGS (8)
  1. HUMIRA [Suspect]
     Indication: RHEUMATOID ARTHRITIS
     Dosage: 40 MG, 1 IN 2 WK, SUBCUTANEOUS
     Route: 058
     Dates: start: 20050314
  2. PREDNISONE TAB [Concomitant]
  3. METHOTREXATE SODIUM [Concomitant]
  4. PILOCARPINE HYDROCHLORIDE [Concomitant]
  5. GABAPENTIN [Concomitant]
  6. NORTRIPTYLINE HCL [Concomitant]
  7. OXYCOCET [Concomitant]
  8. COLESTYRAMINE [Concomitant]

REACTIONS (1)
  - INJECTION SITE IRRITATION [None]
